FAERS Safety Report 5452293-X (Version None)
Quarter: 2007Q3

REPORT INFORMATION
  Report Type: 
  Country: None (occurrence: None)
  Receive Date: 20070912
  Receipt Date: 20070912
  Transmission Date: 20080115
  Serious: Yes (Life-Threatening)
  Sender: FDA-Public Use
  Company Number: None

PATIENT
  Age: 42 Year
  Sex: Female
  Weight: 82.5547 kg

DRUGS (1)
  1. TAXOTERE [Suspect]
     Indication: BREAST CANCER
     Dosage: 137 EVERY 3 WEEKS IV
     Route: 042
     Dates: start: 20070727, end: 20070907

REACTIONS (2)
  - CHEST DISCOMFORT [None]
  - FLUSHING [None]
